FAERS Safety Report 9258147 (Version 2)
Quarter: 2013Q2

REPORT INFORMATION
  Report Type: Spontaneous
  Country: GB (occurrence: GB)
  Receive Date: 20130426
  Receipt Date: 20130624
  Transmission Date: 20140414
  Serious: Yes (Other)
  Sender: FDA-Public Use
  Company Number: PHFR2013GB001519

PATIENT
  Age: 8 Year
  Sex: Male

DRUGS (2)
  1. VOLTAROL [Suspect]
     Dosage: 25 MG, TID
     Route: 048
     Dates: start: 20130205, end: 20130212
  2. CALPOL [Concomitant]
     Dosage: UNK UKN, UNK

REACTIONS (6)
  - Urinary tract infection [Unknown]
  - Pyrexia [Unknown]
  - Vomiting [Unknown]
  - Haematuria [Recovered/Resolved]
  - Emotional distress [Unknown]
  - Drug administered to patient of inappropriate age [Unknown]
